FAERS Safety Report 23571063 (Version 1)
Quarter: 2024Q1

REPORT INFORMATION
  Report Type: Spontaneous
  Country: US (occurrence: US)
  Receive Date: 20240227
  Receipt Date: 20240227
  Transmission Date: 20240409
  Serious: Yes (Other)
  Sender: FDA-Public Use
  Company Number: US-SUN PHARMACEUTICAL INDUSTRIES LTD-2024R1-433114

PATIENT
  Age: 44 Year
  Sex: Female

DRUGS (2)
  1. PREDNISONE [Suspect]
     Active Substance: PREDNISONE
     Indication: Adrenocortical steroid therapy
     Dosage: 5 MILLIGRAM
     Route: 065
  2. HYDROCORTISONE [Suspect]
     Active Substance: HYDROCORTISONE
     Indication: Adrenocortical steroid therapy
     Dosage: UNKNOWN
     Route: 065

REACTIONS (3)
  - Benign neoplasm of adrenal gland [Unknown]
  - Intentional dose omission [Unknown]
  - Swelling face [Unknown]
